FAERS Safety Report 16689770 (Version 5)
Quarter: 2025Q2

REPORT INFORMATION
  Report Type: Report from Study
  Country: US (occurrence: US)
  Receive Date: 20190809
  Receipt Date: 20250514
  Transmission Date: 20250717
  Serious: Yes (Other)
  Sender: TAKEDA
  Company Number: US-SHIRE-US201925436

PATIENT
  Age: 86 Year
  Sex: Female
  Weight: 53 kg

DRUGS (16)
  1. TEDUGLUTIDE [Suspect]
     Active Substance: TEDUGLUTIDE
     Indication: Short-bowel syndrome
  2. TEDUGLUTIDE [Suspect]
     Active Substance: TEDUGLUTIDE
     Dosage: 3.165 MILLIGRAM, QD
  3. TEDUGLUTIDE [Suspect]
     Active Substance: TEDUGLUTIDE
     Dosage: 3.1 MILLIGRAM, QD
  4. TEDUGLUTIDE [Suspect]
     Active Substance: TEDUGLUTIDE
     Dosage: 3.1 MILLIGRAM, QD
  5. TEDUGLUTIDE [Suspect]
     Active Substance: TEDUGLUTIDE
  6. TEDUGLUTIDE [Suspect]
     Active Substance: TEDUGLUTIDE
  7. ROBITUSSIN (GUAIFENESIN) [Concomitant]
     Active Substance: GUAIFENESIN
     Indication: Cough
  8. ROBITUSSIN (GUAIFENESIN) [Concomitant]
     Active Substance: GUAIFENESIN
     Indication: Respiratory tract congestion
  9. GABAPENTIN [Concomitant]
     Active Substance: GABAPENTIN
  10. CALCIUM [Concomitant]
     Active Substance: CALCIUM
  11. CARVEDILOL [Concomitant]
     Active Substance: CARVEDILOL
  12. ASPIRIN [Concomitant]
     Active Substance: ASPIRIN
  13. CYANOCOBALAMIN [Concomitant]
     Active Substance: CYANOCOBALAMIN
  14. VITAMIN D2 [Concomitant]
     Active Substance: ERGOCALCIFEROL
  15. METOPROLOL SUCCINATE [Concomitant]
     Active Substance: METOPROLOL SUCCINATE
  16. ELIQUIS [Concomitant]
     Active Substance: APIXABAN

REACTIONS (12)
  - Cerebrovascular accident [Recovered/Resolved]
  - Frequent bowel movements [Not Recovered/Not Resolved]
  - Sinus disorder [Unknown]
  - Blood pressure increased [Unknown]
  - Diarrhoea [Unknown]
  - Peripheral swelling [Unknown]
  - Viral infection [Unknown]
  - Product packaging quantity issue [Unknown]
  - Laryngitis [Unknown]
  - Sinusitis [Unknown]
  - Large intestine polyp [Recovered/Resolved]
  - Cough [Unknown]

NARRATIVE: CASE EVENT DATE: 20231201
